FAERS Safety Report 7323985-2 (Version None)
Quarter: 2011Q1

REPORT INFORMATION
  Report Type: 
  Country: None (occurrence: None)
  Receive Date: 20110301
  Receipt Date: 20110225
  Transmission Date: 20110831
  Serious: Yes (Death)
  Sender: FDA-Public Use
  Company Number: CZ-PFIZER INC-2011042948

PATIENT
  Age: 53 Year
  Sex: Male

DRUGS (1)
  1. METHYLPREDNISOLONE [Suspect]
     Indication: PULMONARY FIBROSIS
     Dosage: 80 MG

REACTIONS (2)
  - ASPERGILLOSIS [None]
  - SECONDARY IMMUNODEFICIENCY [None]
